FAERS Safety Report 22166432 (Version 2)
Quarter: 2023Q2

REPORT INFORMATION
  Report Type: Spontaneous
  Country: US (occurrence: US)
  Receive Date: 20230403
  Receipt Date: 20230412
  Transmission Date: 20230722
  Serious: Yes (Hospitalization, Other)
  Sender: FDA-Public Use
  Company Number: US-BAXTER-2023BAX016843

PATIENT
  Age: 71 Year
  Sex: Female

DRUGS (4)
  1. DIANEAL [Suspect]
     Active Substance: CALCIUM CHLORIDE\DEXTROSE\MAGNESIUM CHLORIDE\SODIUM CHLORIDE\SODIUM LACTATE
     Indication: End stage renal disease
     Dosage: ULTRABAG
     Route: 033
     Dates: end: 20230329
  2. DIANEAL [Suspect]
     Active Substance: CALCIUM CHLORIDE\DEXTROSE\MAGNESIUM CHLORIDE\SODIUM CHLORIDE\SODIUM LACTATE
     Dosage: AMBUFLEX
     Route: 033
     Dates: start: 20230323, end: 20230330
  3. EXTRANEAL [Suspect]
     Active Substance: CALCIUM CHLORIDE\ICODEXTRIN\MAGNESIUM CHLORIDE\SODIUM CHLORIDE\SODIUM LACTATE
     Indication: End stage renal disease
     Dosage: ULTRABAG
     Route: 033
     Dates: end: 20230329
  4. EXTRANEAL [Suspect]
     Active Substance: CALCIUM CHLORIDE\ICODEXTRIN\MAGNESIUM CHLORIDE\SODIUM CHLORIDE\SODIUM LACTATE
     Dosage: AMBUFLEX
     Route: 033
     Dates: start: 20230323, end: 20230330

REACTIONS (15)
  - Peritoneal dialysis complication [Recovered/Resolved]
  - Fungal peritonitis [Recovering/Resolving]
  - Peritoneal cloudy effluent [Unknown]
  - Bloody peritoneal effluent [Unknown]
  - Abdominal pain [Unknown]
  - Irritable bowel syndrome [Recovering/Resolving]
  - Weight decreased [Unknown]
  - Urinary tract infection [Recovered/Resolved]
  - Urinary tract infection [Recovered/Resolved]
  - Urinary tract infection [Unknown]
  - Sinus disorder [Unknown]
  - Weight increased [Unknown]
  - Cough [Unknown]
  - Dehydration [Recovered/Resolved]
  - Muscle spasms [Recovered/Resolved]

NARRATIVE: CASE EVENT DATE: 20220922
